FAERS Safety Report 8253533-4 (Version None)
Quarter: 2012Q2

REPORT INFORMATION
  Report Type: 
  Country: None (occurrence: None)
  Receive Date: 20120402
  Receipt Date: 20120305
  Transmission Date: 20120825
  Serious: No
  Sender: FDA-Public Use
  Company Number: US-AMGEN-USASP2012014634

PATIENT
  Age: 46 Year
  Sex: Female

DRUGS (1)
  1. ENBREL [Suspect]
     Indication: RHEUMATOID ARTHRITIS
     Dosage: 50 MG, QWK
     Dates: start: 20090622, end: 20120205

REACTIONS (9)
  - VAGINAL DISCHARGE [None]
  - NASOPHARYNGITIS [None]
  - EAR PRURITUS [None]
  - THROAT IRRITATION [None]
  - THERMAL BURN [None]
  - BLISTER [None]
  - PHARYNGEAL ERYTHEMA [None]
  - NASAL DISCHARGE DISCOLOURATION [None]
  - RHEUMATOID ARTHRITIS [None]
